FAERS Safety Report 17686100 (Version 1)
Quarter: 2020Q2

REPORT INFORMATION
  Report Type: Spontaneous
  Country: US (occurrence: US)
  Receive Date: 20200420
  Receipt Date: 20200420
  Transmission Date: 20200714
  Serious: Yes (Hospitalization)
  Sender: FDA-Public Use
  Company Number: None

PATIENT
  Age: 23 Year
  Sex: Female
  Weight: 53.4 kg

DRUGS (18)
  1. AZACITIDINE. [Suspect]
     Active Substance: AZACITIDINE
     Indication: ACUTE MYELOID LEUKAEMIA
     Dosage: ?          OTHER FREQUENCY:DAY 1 TO DAY 5;?
     Route: 058
     Dates: start: 20200302, end: 20200403
  2. RANITIDINE 150 MG PO BID [Concomitant]
  3. SULFAMETHOXAZOLE-TRIMETHOPRIM  800-160 MG PO BID SATURDAY AND SUNDAY [Concomitant]
  4. URSODIOL 300 MG PO TID [Concomitant]
  5. TACROLIMUS 1 MG PO DAILY [Concomitant]
  6. METOPROLOL SUCCINATE 100 MG XL PO DAILY [Concomitant]
  7. OLANZAPINE  5 MG PO QHS [Concomitant]
  8. ACYCLOVIR 400 MG CAPSULE PO BID [Concomitant]
  9. DULOXETINE 60 MG PO DAILY [Concomitant]
  10. SODIUM BICARBONATE 650 MG PO BID [Concomitant]
  11. VALPORIC ACID [Suspect]
     Active Substance: VALPROIC ACID
     Route: 048
     Dates: start: 20200302, end: 20200413
  12. FOLIC ACID 1 MG PO BID [Concomitant]
  13. NORETHINDRONE ACET-ETHINYL EST  1.5-30 MG-MCG PO DAILY [Concomitant]
  14. ONDANSETRON 8 MG PO PRN Q8H [Concomitant]
  15. PREDNISONE 15 MG PO BID [Concomitant]
  16. FLUCONAZOLE 200 MG PO BID [Concomitant]
  17. MULTIPLE VITAMIN 1 TAB PO DAILY [Concomitant]
  18. METOCLOPRAMIDE 10 MG PO DAILY [Concomitant]

REACTIONS (1)
  - Acute myeloid leukaemia recurrent [None]

NARRATIVE: CASE EVENT DATE: 20200413
